FAERS Safety Report 13359669 (Version 1)
Quarter: 2017Q1

REPORT INFORMATION
  Report Type: Report from Study
  Country: None (occurrence: MX)
  Receive Date: 20170322
  Receipt Date: 20170322
  Transmission Date: 20170429
  Serious: Yes (Other)
  Sender: FDA-Public Use
  Company Number: MX-ABBVIE-17P-107-1910290-00

PATIENT
  Sex: Female

DRUGS (1)
  1. HUMIRA [Suspect]
     Active Substance: ADALIMUMAB
     Indication: PSORIASIS
     Route: 058
     Dates: start: 20160128

REACTIONS (3)
  - Exposure during pregnancy [Unknown]
  - Foetal death [Unknown]
  - Abortion [Unknown]
